FAERS Safety Report 6616943-4 (Version None)
Quarter: 2010Q1

REPORT INFORMATION
  Report Type: 
  Country: None (occurrence: None)
  Receive Date: 20100301
  Receipt Date: 20100212
  Transmission Date: 20100710
  Serious: Yes (Other)
  Sender: FDA-Public Use
  Company Number: 2010-00202

PATIENT
  Age: 75 Year
  Sex: Female

DRUGS (1)
  1. LISINOPRIL [Suspect]
     Indication: DRUG USE FOR UNKNOWN INDICATION

REACTIONS (9)
  - BLISTER [None]
  - DRY MOUTH [None]
  - EAR PAIN [None]
  - ERYTHEMA [None]
  - LIP SWELLING [None]
  - NASAL DISCOMFORT [None]
  - PHARYNGEAL OEDEMA [None]
  - SKIN EXFOLIATION [None]
  - SWOLLEN TONGUE [None]
